FAERS Safety Report 4765059-0 (Version None)
Quarter: 2005Q3

REPORT INFORMATION
  Report Type: 
  Country: None (occurrence: None)
  Receive Date: 20050907
  Receipt Date: 20050828
  Transmission Date: 20060218
  Serious: Yes (Hospitalization, Other)
  Sender: FDA-Public Use
  Company Number: 2005120727

PATIENT
  Age: 60 Year
  Sex: Female
  Weight: 82.1011 kg

DRUGS (3)
  1. BENADRYL [Suspect]
     Indication: ALLERGY TO ARTHROPOD STING
     Dosage: 100 MG (50 MG, 2 IN 1 D), INTRAVENOUS
     Route: 042
     Dates: start: 20050827
  2. SOLU-MEDROL [Suspect]
     Indication: ALLERGY TO ARTHROPOD STING
     Dosage: 500 MG, INTRAVENOUS
     Route: 042
     Dates: start: 20050827
  3. EPINEPHRINE [Suspect]
     Indication: ALLERGY TO ARTHROPOD STING
     Dosage: 0.3 MG (0.3 MG,  1 IN 1 D)
     Dates: start: 20050827

REACTIONS (4)
  - BLOOD GLUCOSE INCREASED [None]
  - DRUG INTERACTION [None]
  - SPEECH DISORDER [None]
  - WHITE BLOOD CELL COUNT INCREASED [None]
